FAERS Safety Report 22113253 (Version 1)
Quarter: 2023Q1

REPORT INFORMATION
  Report Type: Other
  Country: PH (occurrence: None)
  Receive Date: 20230320
  Receipt Date: 20230320
  Transmission Date: 20230418
  Serious: Yes (Other)
  Sender: FDA-Public Use
  Company Number: PH-ROCHE-3274913

PATIENT
  Age: 45 Year
  Sex: Female
  Weight: 46.5 kg

DRUGS (3)
  1. AVASTIN [Suspect]
     Active Substance: BEVACIZUMAB
     Indication: Ovarian epithelial cancer
     Dosage: AVASTIN 400MG 1 VIAL ;ONGOING: YES
     Route: 042
  2. AVASTIN [Suspect]
     Active Substance: BEVACIZUMAB
     Indication: Fallopian tube cancer
     Dosage: AVASTIN 100MG 1VIAL ;ONGOING: YES
     Route: 042
  3. AVASTIN [Suspect]
     Active Substance: BEVACIZUMAB
     Indication: Malignant peritoneal neoplasm

REACTIONS (2)
  - Pyelocaliectasis [Recovering/Resolving]
  - Blood creatinine increased [Recovering/Resolving]
